FAERS Safety Report 8488889-0 (Version None)
Quarter: 2012Q3

REPORT INFORMATION
  Report Type: 
  Country: None (occurrence: None)
  Receive Date: 20120705
  Receipt Date: 20120705
  Transmission Date: 20120928
  Serious: Yes (Hospitalization, Other)
  Sender: FDA-Public Use
  Company Number: US-PFIZER INC-2008048978

PATIENT
  Sex: Female
  Weight: 68 kg

DRUGS (21)
  1. INSULIN [Concomitant]
  2. CALAN [Suspect]
     Dosage: 120 MG, 2X/DAY
     Route: 048
     Dates: start: 20080101
  3. BENICAR [Concomitant]
     Dosage: UNK
  4. NEXIUM [Concomitant]
  5. IBANDRONATE SODIUM [Concomitant]
  6. PREDNISONE [Concomitant]
  7. LYRICA [Concomitant]
     Dosage: UNK
  8. MULTI-VITAMINS [Concomitant]
  9. ASCORBIC ACID [Concomitant]
  10. CATAPRES [Concomitant]
  11. AMARYL [Concomitant]
     Indication: DIABETES MELLITUS
  12. POTASSIUM [Concomitant]
     Dosage: UNK
  13. LEVOXYL [Concomitant]
  14. TEKTURNA [Concomitant]
  15. METHOTREXATE SODIUM [Concomitant]
  16. SYNTHROID [Concomitant]
     Dosage: UNK
  17. ZETIA [Concomitant]
     Dosage: UNK
  18. CALAN [Suspect]
     Indication: HYPERTENSION
     Dosage: 120 MG, 2X/DAY
     Route: 048
     Dates: start: 20080101
  19. ASPIRIN [Concomitant]
  20. FISH OIL [Concomitant]
  21. LANTUS [Concomitant]
     Indication: DIABETES MELLITUS
     Dosage: UNK

REACTIONS (5)
  - DIARRHOEA [None]
  - SLEEP DISORDER [None]
  - ABDOMINAL DISCOMFORT [None]
  - HERNIA [None]
  - WEIGHT INCREASED [None]
